FAERS Safety Report 4865889-0 (Version None)
Quarter: 2005Q4

REPORT INFORMATION
  Report Type: 
  Country: None (occurrence: None)
  Receive Date: 20051223
  Receipt Date: 20051219
  Transmission Date: 20060501
  Serious: Yes (Hospitalization)
  Sender: FDA-Public Use
  Company Number: PHRM2005FR03313

PATIENT
  Age: 8 Year
  Sex: Female
  Weight: 32 kg

DRUGS (4)
  1. TERCIAN [Suspect]
     Indication: ABNORMAL BEHAVIOUR
     Route: 048
     Dates: start: 20051004
  2. MINIRIN [Concomitant]
     Dates: start: 20040817
  3. LEUPROLIDE ACETATE [Concomitant]
     Dates: start: 20030101
  4. TEGRETOL [Suspect]
     Dosage: 800 MG/DAY
     Route: 048
     Dates: start: 19990501

REACTIONS (4)
  - BRAIN OEDEMA [None]
  - CONCOMITANT DISEASE AGGRAVATED [None]
  - DIABETES INSIPIDUS [None]
  - HYPONATRAEMIA [None]
